FAERS Safety Report 13375475 (Version 1)
Quarter: 2017Q1

REPORT INFORMATION
  Report Type: Report from Study
  Country: US (occurrence: CA)
  Receive Date: 20170327
  Receipt Date: 20170327
  Transmission Date: 20170429
  Serious: Yes (Hospitalization, Other)
  Sender: FDA-Public Use
  Company Number: US-SUNOVION-2017SUN001277

PATIENT
  Sex: Female

DRUGS (26)
  1. XOLAIR [Suspect]
     Active Substance: OMALIZUMAB
     Dosage: UNK
     Route: 058
     Dates: start: 20160525
  2. AZITHROMYCIN ANHYDROUS. [Concomitant]
     Active Substance: AZITHROMYCIN ANHYDROUS
  3. AMLODIPINE [Concomitant]
     Active Substance: AMLODIPINE BESYLATE
  4. ASA [Concomitant]
     Active Substance: ASPIRIN
  5. GLYCOPYRROLATE. [Suspect]
     Active Substance: GLYCOPYRROLATE
     Indication: ASTHMA
     Dosage: 50 ?G, QD
     Route: 055
     Dates: start: 20150324
  6. XOLAIR [Suspect]
     Active Substance: OMALIZUMAB
     Dosage: UNK
     Route: 058
     Dates: start: 20160511
  7. PAROXETINE. [Concomitant]
     Active Substance: PAROXETINE
  8. SYNTHROID [Concomitant]
     Active Substance: LEVOTHYROXINE SODIUM
  9. METFORMIN [Concomitant]
     Active Substance: METFORMIN HYDROCHLORIDE
  10. XOLAIR [Suspect]
     Active Substance: OMALIZUMAB
     Indication: ASTHMA
     Dosage: 375 MG,BIWEEKLY
     Route: 058
     Dates: start: 20151216
  11. XOLAIR [Suspect]
     Active Substance: OMALIZUMAB
     Dosage: UNK
     Route: 058
     Dates: start: 20160622
  12. XOLAIR [Suspect]
     Active Substance: OMALIZUMAB
     Dosage: UNK
     Route: 058
     Dates: start: 20170301
  13. ZENHALE [Concomitant]
     Active Substance: FORMOTEROL FUMARATE\MOMETASONE FUROATE
  14. EPIPEN [Concomitant]
     Active Substance: EPINEPHRINE
  15. XOLAIR [Suspect]
     Active Substance: OMALIZUMAB
     Dosage: UNK
     Route: 058
     Dates: start: 20160706
  16. VITAMIN B12 [Concomitant]
     Active Substance: CYANOCOBALAMIN
  17. BENADRYL [Concomitant]
     Active Substance: DIPHENHYDRAMINE HYDROCHLORIDE
  18. XOLAIR [Suspect]
     Active Substance: OMALIZUMAB
     Dosage: UNK
     Route: 058
     Dates: start: 20160720
  19. VENTOLIN [Concomitant]
     Active Substance: ALBUTEROL SULFATE
  20. MELOXICAM. [Concomitant]
     Active Substance: MELOXICAM
  21. TECTA [Concomitant]
     Active Substance: PANTOPRAZOLE MAGNESIUM
  22. EUROFER [Concomitant]
  23. XOLAIR [Suspect]
     Active Substance: OMALIZUMAB
     Dosage: UNK
     Route: 058
     Dates: start: 20161109
  24. ALVESCO [Concomitant]
     Active Substance: CICLESONIDE
  25. VITAMIN D [Concomitant]
     Active Substance: CHOLECALCIFEROL
  26. DIAMICRON [Concomitant]
     Active Substance: GLICLAZIDE

REACTIONS (11)
  - Dyspnoea exertional [Unknown]
  - Product use issue [Unknown]
  - Blood disorder [Not Recovered/Not Resolved]
  - Plasma cell myeloma [Unknown]
  - Inflammation [Not Recovered/Not Resolved]
  - Malaise [Unknown]
  - Asthma [Unknown]
  - Chronic obstructive pulmonary disease [Unknown]
  - Blood pressure abnormal [Unknown]
  - Humidity intolerance [Unknown]
  - Dyspnoea [Unknown]
